FAERS Safety Report 20263279 (Version 2)
Quarter: 2022Q1

REPORT INFORMATION
  Report Type: Spontaneous
  Country: CN (occurrence: CN)
  Receive Date: 20211231
  Receipt Date: 20220111
  Transmission Date: 20220423
  Serious: Yes (Other)
  Sender: FDA-Public Use
  Company Number: CN-002147023-NVSC2021CN295948

PATIENT
  Age: 60 Year
  Sex: Female

DRUGS (1)
  1. RANIBIZUMAB [Suspect]
     Active Substance: RANIBIZUMAB
     Indication: Retinal vein occlusion
     Dosage: (LEFT EYE)
     Route: 050

REACTIONS (3)
  - Blindness transient [Recovered/Resolved]
  - Ocular hypertension [Recovered/Resolved]
  - Visual acuity reduced [Recovered/Resolved]
